FAERS Safety Report 8447703-X (Version None)
Quarter: 2012Q2

REPORT INFORMATION
  Report Type: 
  Country: None (occurrence: None)
  Receive Date: 20120619
  Receipt Date: 20120615
  Transmission Date: 20120825
  Serious: Yes (Death, Other)
  Sender: FDA-Public Use
  Company Number: US-PFIZER INC-2012145060

PATIENT
  Sex: Female
  Weight: 77.098 kg

DRUGS (1)
  1. REVATIO [Suspect]
     Indication: PULMONARY HYPERTENSION
     Dosage: UNK
     Route: 048
     Dates: start: 20060101

REACTIONS (5)
  - CARDIAC FAILURE [None]
  - MYELODYSPLASTIC SYNDROME [None]
  - RENAL FAILURE [None]
  - CORONARY ARTERY DISEASE [None]
  - PULMONARY HYPERTENSION [None]
